FAERS Safety Report 15478892 (Version 9)
Quarter: 2020Q4

REPORT INFORMATION
  Report Type: Report from Study
  Country: US (occurrence: US)
  Receive Date: 20181009
  Receipt Date: 20201105
  Transmission Date: 20210113
  Serious: Yes (Hospitalization, Other)
  Sender: FDA-Public Use
  Company Number: PHEH2018US041466

PATIENT
  Age: 14 Year
  Sex: Male
  Weight: 46.5 kg

DRUGS (3)
  1. CYCLOPHOSPHAMIDE. [Concomitant]
     Active Substance: CYCLOPHOSPHAMIDE
     Indication: CHEMOTHERAPY
     Route: 065
     Dates: start: 20180601, end: 20180602
  2. FLUDARABINE [Concomitant]
     Active Substance: FLUDARABINE PHOSPHATE
     Indication: CHEMOTHERAPY
     Route: 065
     Dates: start: 20180601, end: 20180604
  3. KYMRIAH [Suspect]
     Active Substance: TISAGENLECLEUCEL
     Indication: B-CELL TYPE ACUTE LEUKAEMIA
     Dosage: 1.7 X 10E6 CELLS, ONCE/SINGLE
     Route: 041
     Dates: start: 20180607

REACTIONS (20)
  - Cytokine release syndrome [Recovered/Resolved]
  - Pyrexia [Recovered/Resolved]
  - Hyperproteinaemia [Unknown]
  - Magnetic resonance imaging brain abnormal [Unknown]
  - Facial paralysis [Not Recovered/Not Resolved]
  - Neurotoxicity [Recovered/Resolved]
  - Confusional state [Unknown]
  - Lymphocyte count decreased [Recovered/Resolved]
  - Platelet count decreased [Unknown]
  - Arthralgia [Unknown]
  - Neck pain [Unknown]
  - Depressed level of consciousness [Unknown]
  - Haematocrit decreased [Not Recovered/Not Resolved]
  - Haemoglobin decreased [Not Recovered/Not Resolved]
  - Hypotension [Recovered/Resolved]
  - Aphasia [Unknown]
  - Neutrophil count decreased [Unknown]
  - White blood cell count decreased [Unknown]
  - Hypoxia [Recovered/Resolved]
  - Disorientation [Unknown]

NARRATIVE: CASE EVENT DATE: 20180611
